FAERS Safety Report 19467475 (Version 1)
Quarter: 2021Q2

REPORT INFORMATION
  Report Type: Spontaneous
  Country: US (occurrence: US)
  Receive Date: 20210628
  Receipt Date: 20210628
  Transmission Date: 20210717
  Serious: Yes (Other)
  Sender: FDA-Public Use
  Company Number: NVSC2021US143743

PATIENT
  Age: 62 Year
  Sex: Male

DRUGS (4)
  1. RANITIDINE. [Suspect]
     Active Substance: RANITIDINE
     Indication: GASTROOESOPHAGEAL REFLUX DISEASE
     Dosage: 150 MG, QD
     Route: 065
     Dates: end: 201712
  2. RANITIDINE. [Suspect]
     Active Substance: RANITIDINE
     Indication: FLATULENCE
  3. RANITIDINE. [Suspect]
     Active Substance: RANITIDINE
     Indication: GASTROOESOPHAGEAL REFLUX DISEASE
     Dosage: 150 MG, QD
     Route: 065
     Dates: end: 201712
  4. RANITIDINE. [Suspect]
     Active Substance: RANITIDINE
     Indication: FLATULENCE

REACTIONS (4)
  - Renal cancer [Unknown]
  - Incorrect dose administered [Unknown]
  - Small intestine carcinoma [Unknown]
  - Bladder cancer [Unknown]

NARRATIVE: CASE EVENT DATE: 19971101
